FAERS Safety Report 4606508-8 (Version None)
Quarter: 2005Q2

REPORT INFORMATION
  Report Type: 
  Country: None (occurrence: None)
  Receive Date: 20050223
  Receipt Date: 20040726
  Transmission Date: 20051028
  Serious: Yes (Disabling)
  Sender: FDA-Public Use
  Company Number: WAES 0202USA01718

PATIENT
  Age: 70 Year
  Sex: Female

DRUGS (5)
  1. ZOCOR [Suspect]
     Indication: HYPERCHOLESTEROLAEMIA
     Dosage: 20 MG/PO
     Route: 048
     Dates: start: 20030101, end: 20040601
  2. ZOCOR [Suspect]
     Indication: HYPERCHOLESTEROLAEMIA
     Dosage: 20 MG/PO
     Route: 048
     Dates: end: 20020211
  3. DIOVAN [Concomitant]
  4. NORVASC [Concomitant]
  5. PRINIVIL [Concomitant]

REACTIONS (4)
  - MUSCULAR WEAKNESS [None]
  - MYALGIA [None]
  - RASH PRURITIC [None]
  - URTICARIA [None]
